FAERS Safety Report 15492247 (Version 1)
Quarter: 2018Q4

REPORT INFORMATION
  Report Type: Spontaneous
  Country: US (occurrence: US)
  Receive Date: 20181012
  Receipt Date: 20181012
  Transmission Date: 20190205
  Serious: Yes (Death)
  Sender: FDA-Public Use
  Company Number: US-ALLERGAN-1848598US

PATIENT
  Age: 82 Year
  Sex: Male

DRUGS (1)
  1. NAMZARIC [Suspect]
     Active Substance: DONEPEZIL HYDROCHLORIDE\MEMANTINE HYDROCHLORIDE
     Indication: DEMENTIA ALZHEIMER^S TYPE
     Dosage: ^28/10^, UNK
     Route: 065
     Dates: start: 201707

REACTIONS (2)
  - General physical health deterioration [Unknown]
  - Sudden death [Fatal]

NARRATIVE: CASE EVENT DATE: 201807
